FAERS Safety Report 9477488 (Version 1)
Quarter: 2013Q3

REPORT INFORMATION
  Report Type: Spontaneous
  Country: US (occurrence: US)
  Receive Date: 20130827
  Receipt Date: 20130827
  Transmission Date: 20140515
  Serious: Yes (Other)
  Sender: FDA-Public Use
  Company Number: US-ASTRAZENECA-2013SE64129

PATIENT
  Age: 60 Year
  Sex: Male

DRUGS (9)
  1. NEXIUM [Suspect]
     Route: 048
  2. PROMETHAZINE [Suspect]
     Dosage: AS NEEDED
     Route: 065
  3. CIPRO [Suspect]
     Dosage: AS NEEDED
     Route: 065
  4. OMEGA 369 [Suspect]
     Route: 065
  5. EQUATE COMPLETE MULTIVITAMIN [Suspect]
     Route: 065
  6. EQUATE SOFT STOOL SOFTENER [Suspect]
     Indication: FAECES HARD
     Route: 065
  7. MELATONIN [Suspect]
     Route: 065
  8. MILK THISTLE [Suspect]
     Route: 065
  9. KRISTALOSE [Concomitant]

REACTIONS (5)
  - Hepatic failure [Unknown]
  - Gamma-glutamyltransferase abnormal [Unknown]
  - Blood creatinine increased [Unknown]
  - Gamma-glutamyltransferase increased [Unknown]
  - Renal disorder [Unknown]
